FAERS Safety Report 9705292 (Version 2)
Quarter: 2013Q4

REPORT INFORMATION
  Report Type: Report from Study
  Country: US (occurrence: US)
  Receive Date: 20131122
  Receipt Date: 20131122
  Transmission Date: 20140711
  Serious: Yes (Other)
  Sender: FDA-Public Use
  Company Number: US-PURDUE-USA-2013-0107630

PATIENT
  Age: 55 Year
  Sex: Male

DRUGS (2)
  1. OXY CR TAB [Suspect]
     Indication: BACK PAIN
     Dosage: 80 MG, UNK
     Route: 048
     Dates: start: 20130912, end: 20131015
  2. OXY CR TAB [Suspect]
     Indication: NECK PAIN
     Dosage: 60 MG, TID
     Route: 048
     Dates: start: 2006

REACTIONS (10)
  - Road traffic accident [Recovered/Resolved]
  - Concussion [Unknown]
  - Migraine [Unknown]
  - Back pain [Not Recovered/Not Resolved]
  - Neck pain [Not Recovered/Not Resolved]
  - Nasopharyngitis [Not Recovered/Not Resolved]
  - Sinus congestion [Unknown]
  - Nausea [Unknown]
  - Insomnia [Unknown]
  - Asthenia [Unknown]
